FAERS Safety Report 18376226 (Version 6)
Quarter: 2022Q3

REPORT INFORMATION
  Report Type: Report from Study
  Country: AR (occurrence: AR)
  Receive Date: 20201013
  Receipt Date: 20220917
  Transmission Date: 20221027
  Serious: Yes (Hospitalization, Other)
  Sender: FDA-Public Use
  Company Number: NVSC2020AR153483

PATIENT
  Age: 38 Year
  Sex: Female

DRUGS (2)
  1. COSENTYX [Suspect]
     Active Substance: SECUKINUMAB
     Indication: Psoriasis
     Dosage: 300 MG, QMO
     Route: 058
     Dates: start: 20191026
  2. COSENTYX [Suspect]
     Active Substance: SECUKINUMAB
     Indication: Psoriatic arthropathy

REACTIONS (12)
  - Decreased appetite [Unknown]
  - Dyspnoea [Unknown]
  - Headache [Unknown]
  - Psoriatic arthropathy [Not Recovered/Not Resolved]
  - Pain in extremity [Not Recovered/Not Resolved]
  - Arthralgia [Unknown]
  - Gait inability [Not Recovered/Not Resolved]
  - Musculoskeletal stiffness [Unknown]
  - Pain [Unknown]
  - Hypertension [Unknown]
  - Psoriasis [Not Recovered/Not Resolved]
  - Pruritus [Unknown]

NARRATIVE: CASE EVENT DATE: 20200501
